FAERS Safety Report 23759453 (Version 1)
Quarter: 2024Q2

REPORT INFORMATION
  Report Type: Spontaneous
  Country: US (occurrence: None)
  Receive Date: 20240418
  Receipt Date: 20240418
  Transmission Date: 20240716
  Serious: No
  Sender: FDA-Public Use
  Company Number: US-ROCHE-3388400

PATIENT
  Sex: Female

DRUGS (1)
  1. ESBRIET [Suspect]
     Active Substance: PIRFENIDONE
     Indication: Idiopathic pulmonary fibrosis
     Route: 048
     Dates: start: 202302

REACTIONS (5)
  - Haemorrhage [Unknown]
  - Skin exfoliation [Unknown]
  - Pain in extremity [Unknown]
  - Hypoaesthesia [Unknown]
  - Condition aggravated [Unknown]
